FAERS Safety Report 4465158-7 (Version None)
Quarter: 2004Q3

REPORT INFORMATION
  Report Type: 
  Country: None (occurrence: None)
  Receive Date: 20040929
  Receipt Date: 20040915
  Transmission Date: 20050211
  Serious: Yes (Death, Other)
  Sender: FDA-Public Use
  Company Number: USA040875508

PATIENT
  Age: 68 Year
  Sex: Female
  Weight: 73 kg

DRUGS (23)
  1. XIGRIS [Suspect]
     Indication: SEPSIS
     Dosage: 24 UG/KG/HR
     Dates: start: 20040812, end: 20040813
  2. VANCOMYCIN HYDROCHLORIDE [Concomitant]
  3. ALBUMIN (HUMAN) [Concomitant]
  4. CHLOREXIDINE GLUCONATE [Concomitant]
  5. REGULAR INSULIN [Concomitant]
  6. MORPHINE SULFATE [Concomitant]
  7. POTASSIUM ACETATE [Concomitant]
  8. IPATROPIUM BROMIDE [Concomitant]
  9. METRONIDAZOLE [Concomitant]
  10. HYDROCORTISONE SODIUM SUCCINATE [Concomitant]
  11. CIPROFLOXACIN [Concomitant]
  12. NPH INSULIN [Concomitant]
  13. MAGNESIUM SULFATE [Concomitant]
  14. SODIUM BICARBONATE [Concomitant]
  15. PROPOFOL [Concomitant]
  16. RANITIDINE [Concomitant]
  17. CEFOTETAN DISODIUM [Concomitant]
  18. ASPIRIN (ACETYSALICYLIC ACID) [Concomitant]
  19. SODIUM POLYSTYRENE SULFONATE [Concomitant]
  20. TPN [Concomitant]
  21. PANTOPRAZOLE SODIUM [Concomitant]
  22. DOPAMINE HCL [Concomitant]
  23. LEVOPHED [Concomitant]

REACTIONS (7)
  - ACTIVATED PARTIAL THROMBOPLASTIN TIME PROLONGED [None]
  - BLOOD FIBRINOGEN INCREASED [None]
  - HAEMATOCRIT DECREASED [None]
  - HAEMOGLOBIN DECREASED [None]
  - INTERNATIONAL NORMALISED RATIO INCREASED [None]
  - PROTHROMBIN TIME PROLONGED [None]
  - WHITE BLOOD CELL COUNT INCREASED [None]
